FAERS Safety Report 7321897-1 (Version None)
Quarter: 2011Q1

REPORT INFORMATION
  Report Type: 
  Country: None (occurrence: None)
  Receive Date: 20110216
  Receipt Date: 20110203
  Transmission Date: 20110831
  Serious: Yes (Hospitalization)
  Sender: FDA-Public Use
  Company Number: 2010002602

PATIENT
  Age: 66 Year
  Sex: Male

DRUGS (7)
  1. COENZYME Q10 [Concomitant]
  2. VALSARTAN [Concomitant]
  3. METOPROLOL [Concomitant]
  4. ERLOTINIB (ERLOTINIB) (TABLET) (ERLOTINIB) [Suspect]
     Indication: MYELODYSPLASTIC SYNDROME
     Dosage: 150 MG, QD, ORAL; 100 MG, QD, ORAL
     Dates: start: 20100330
  5. ERLOTINIB (ERLOTINIB) (TABLET) (ERLOTINIB) [Suspect]
     Indication: MYELODYSPLASTIC SYNDROME
     Dosage: 150 MG, QD, ORAL; 100 MG, QD, ORAL
     Dates: start: 20100630
  6. COMPAZINE [Concomitant]
  7. ACETAMINOPHEN [Concomitant]

REACTIONS (8)
  - BLOOD BILIRUBIN INCREASED [None]
  - CHEST PAIN [None]
  - CELLULITIS [None]
  - BLOOD CREATININE INCREASED [None]
  - BLOOD UREA INCREASED [None]
  - CHONDROCALCINOSIS [None]
  - JOINT EFFUSION [None]
  - DYSPNOEA [None]
